FAERS Safety Report 16763463 (Version 4)
Quarter: 2020Q3

REPORT INFORMATION
  Report Type: Spontaneous
  Country: US (occurrence: US)
  Receive Date: 20190902
  Receipt Date: 20200828
  Transmission Date: 20201102
  Serious: Yes (Other)
  Sender: FDA-Public Use
  Company Number: US-PFIZER INC-2019374062

PATIENT
  Age: 81 Year
  Sex: Female
  Weight: 80.74 kg

DRUGS (2)
  1. LYRICA [Suspect]
     Active Substance: PREGABALIN
     Indication: NEUROPATHY PERIPHERAL
     Dosage: 50 MG, 1X/DAY (AT NIGHT)
     Route: 048
     Dates: start: 2018
  2. LYRICA [Suspect]
     Active Substance: PREGABALIN
     Dosage: 50 MG, 2X/DAY
     Route: 048

REACTIONS (3)
  - Pain in extremity [Recovered/Resolved]
  - Intentional product use issue [Unknown]
  - Trigger finger [Recovered/Resolved]

NARRATIVE: CASE EVENT DATE: 20190820
